FAERS Safety Report 24324590 (Version 2)
Quarter: 2024Q4

REPORT INFORMATION
  Report Type: Spontaneous
  Country: US (occurrence: US)
  Receive Date: 20240916
  Receipt Date: 20241008
  Transmission Date: 20250115
  Serious: Yes (Other)
  Sender: CALLIDITAS THERAPEUTICS
  Company Number: US-Calliditas-2024CAL01796

PATIENT
  Sex: Female

DRUGS (6)
  1. TARPEYO [Suspect]
     Active Substance: BUDESONIDE
     Indication: IgA nephropathy
     Route: 048
  2. TARPEYO [Suspect]
     Active Substance: BUDESONIDE
     Indication: IgA nephropathy
     Route: 048
     Dates: start: 20231106, end: 20240801
  3. TARPEYO [Suspect]
     Active Substance: BUDESONIDE
     Indication: IgA nephropathy
     Route: 048
     Dates: start: 20240801, end: 202408
  4. FARXIGA [Concomitant]
     Active Substance: DAPAGLIFLOZIN PROPANEDIOL
     Dates: start: 20230607, end: 20240625
  5. JARDIANCE [Concomitant]
     Active Substance: EMPAGLIFLOZIN
     Dates: start: 20240626
  6. ATORVASTATIN [Concomitant]
     Active Substance: ATORVASTATIN
     Dates: start: 20231008

REACTIONS (8)
  - Hypertension [Recovering/Resolving]
  - Diabetes mellitus [Unknown]
  - Weight increased [Recovering/Resolving]
  - Acne [Recovered/Resolved]
  - Muscle spasms [Recovering/Resolving]
  - Menstrual disorder [Not Recovered/Not Resolved]
  - Increased tendency to bruise [Recovering/Resolving]
  - Menopausal symptoms [Unknown]

NARRATIVE: CASE EVENT DATE: 20231101
